FAERS Safety Report 13615636 (Version 1)
Quarter: 2017Q2

REPORT INFORMATION
  Report Type: Spontaneous
  Country: US (occurrence: US)
  Receive Date: 20170606
  Receipt Date: 20170606
  Transmission Date: 20170830
  Serious: No
  Sender: FDA-Public Use
  Company Number: US-JNJFOC-20170524847

PATIENT
  Sex: Female

DRUGS (1)
  1. KETOCONAZOLE. [Suspect]
     Active Substance: KETOCONAZOLE
     Indication: HAIR GROWTH ABNORMAL
     Route: 061

REACTIONS (2)
  - Product use in unapproved indication [Unknown]
  - Expired product administered [Unknown]
